FAERS Safety Report 4795845-2 (Version None)
Quarter: 2005Q4

REPORT INFORMATION
  Report Type: 
  Country: None (occurrence: None)
  Receive Date: 20051007
  Receipt Date: 20050928
  Transmission Date: 20060501
  Serious: Yes (Hospitalization)
  Sender: FDA-Public Use
  Company Number: USA-2005-0021227

PATIENT
  Age: 61 Year
  Sex: Male
  Weight: 68.1 kg

DRUGS (2)
  1. BTDS OR OXYIR (OXY IR) [Suspect]
     Indication: BACK PAIN
     Dosage: 10 MG, Q6H        5MG CAPSULE
     Route: 048
     Dates: start: 20050511, end: 20050815
  2. IBUPROFEN [Suspect]
     Indication: BACK PAIN
     Dosage: 200 MG, BID, ORAL
     Route: 048
     Dates: start: 20050603, end: 20050815

REACTIONS (5)
  - ABASIA [None]
  - ACUTE CORONARY SYNDROME [None]
  - ASTHENIA [None]
  - GUILLAIN-BARRE SYNDROME [None]
  - MOVEMENT DISORDER [None]
